FAERS Safety Report 14606374 (Version 1)
Quarter: 2018Q1

REPORT INFORMATION
  Report Type: Spontaneous
  Country: DE (occurrence: DE)
  Receive Date: 20180307
  Receipt Date: 20180307
  Transmission Date: 20180509
  Serious: Yes (Death, Life-Threatening, Hospitalization, Other)
  Sender: FDA-Public Use
  Company Number: DE-ACCORD-063952

PATIENT
  Age: 47 Year
  Sex: Female

DRUGS (3)
  1. FOLINIC ACID [Suspect]
     Active Substance: LEUCOVORIN
     Indication: CARCINOID TUMOUR OF THE APPENDIX
     Route: 042
     Dates: start: 2016
  2. OXALIPLATIN. [Suspect]
     Active Substance: OXALIPLATIN
     Indication: CARCINOID TUMOUR OF THE APPENDIX
     Route: 042
     Dates: start: 2015
  3. FLUOROURACIL. [Suspect]
     Active Substance: FLUOROURACIL
     Indication: CARCINOID TUMOUR OF THE APPENDIX
     Route: 042
     Dates: start: 2015

REACTIONS (5)
  - Polyneuropathy [Unknown]
  - Pulmonary hypertension [Fatal]
  - Interstitial lung disease [Fatal]
  - Right ventricular failure [Fatal]
  - Respiratory failure [Fatal]
